FAERS Safety Report 8344637-6 (Version None)
Quarter: 2012Q2

REPORT INFORMATION
  Report Type: 
  Country: None (occurrence: None)
  Receive Date: 20120508
  Receipt Date: 20120414
  Transmission Date: 20120825
  Serious: Yes (Other)
  Sender: FDA-Public Use
  Company Number: US-ROCHE-1018408

PATIENT
  Sex: Male
  Weight: 80.812 kg

DRUGS (7)
  1. XANAX [Concomitant]
  2. PROCRIT [Concomitant]
     Route: 011
  3. COPEGUS [Suspect]
     Indication: HEPATITIS C
     Dosage: 600
     Route: 048
     Dates: start: 20111120
  4. LEXAPRO [Concomitant]
     Dates: start: 20110601
  5. VICTRELIS [Suspect]
     Indication: HEPATITIS C
     Route: 048
     Dates: start: 20111220
  6. PEGASYS [Suspect]
     Indication: HEPATITIS C
     Dosage: 180
     Route: 058
     Dates: start: 20111120
  7. NEUPOGEN [Concomitant]

REACTIONS (15)
  - RASH PAPULAR [None]
  - MUSCULOSKELETAL PAIN [None]
  - FLATULENCE [None]
  - FEAR [None]
  - ABDOMINAL PAIN UPPER [None]
  - RED BLOOD CELL COUNT DECREASED [None]
  - RASH PRURITIC [None]
  - INSOMNIA [None]
  - DEPRESSION [None]
  - ANXIETY [None]
  - WHITE BLOOD CELL COUNT DECREASED [None]
  - NAUSEA [None]
  - ANGER [None]
  - BONE PAIN [None]
  - DYSGEUSIA [None]
